FAERS Safety Report 14829488 (Version 1)
Quarter: 2018Q2

REPORT INFORMATION
  Report Type: Spontaneous
  Country: US (occurrence: US)
  Receive Date: 20180430
  Receipt Date: 20180430
  Transmission Date: 20180711
  Serious: No
  Sender: FDA-Public Use
  Company Number: US-GLAXOSMITHKLINE-US2018074015

PATIENT
  Age: 78 Year
  Sex: Male

DRUGS (2)
  1. PERFOROMIST NEBULISER SOLUTION [Concomitant]
  2. ANORO ELLIPTA [Suspect]
     Active Substance: UMECLIDINIUM BROMIDE\VILANTEROL TRIFENATATE
     Indication: CHRONIC OBSTRUCTIVE PULMONARY DISEASE
     Dosage: 1 PUFF(S), QD
     Route: 055
     Dates: start: 201803

REACTIONS (3)
  - Hypertension [Unknown]
  - Asthenia [Unknown]
  - Dyspnoea [Unknown]
